FAERS Safety Report 23480824 (Version 2)
Quarter: 2024Q1

REPORT INFORMATION
  Report Type: Spontaneous
  Country: AR (occurrence: AR)
  Receive Date: 20240205
  Receipt Date: 20240209
  Transmission Date: 20240410
  Serious: Yes (Hospitalization, Other)
  Sender: FDA-Public Use
  Company Number: AR-ABBVIE-5616860

PATIENT
  Age: 18 Year
  Sex: Male

DRUGS (2)
  1. LOPINAVIR\RITONAVIR [Suspect]
     Active Substance: LOPINAVIR\RITONAVIR
     Indication: Human immunodeficiency virus transmission
     Route: 048
  2. EFAVIRENZ [Suspect]
     Active Substance: EFAVIRENZ
     Indication: Human immunodeficiency virus transmission
     Route: 065

REACTIONS (2)
  - Gynaecomastia [Unknown]
  - Breast hyperplasia [Unknown]
